FAERS Safety Report 9290927 (Version 1)
Quarter: 2013Q2

REPORT INFORMATION
  Report Type: Spontaneous
  Country: US (occurrence: US)
  Receive Date: 20130515
  Receipt Date: 20130515
  Transmission Date: 20140414
  Serious: Yes (Other)
  Sender: FDA-Public Use
  Company Number: US-JNJFOC-20130504490

PATIENT
  Sex: Male

DRUGS (2)
  1. MOTRIN [Suspect]
     Indication: PAIN
     Route: 065
  2. IODINE CONTRAST MEDIA [Suspect]
     Indication: PRODUCT USED FOR UNKNOWN INDICATION
     Route: 065

REACTIONS (3)
  - Cardiac failure [Unknown]
  - Renal failure [Unknown]
  - Fluid retention [Unknown]
